FAERS Safety Report 5877357-8 (Version None)
Quarter: 2008Q3

REPORT INFORMATION
  Report Type: 
  Country: None (occurrence: None)
  Receive Date: 20080908
  Receipt Date: 20080826
  Transmission Date: 20090109
  Serious: Yes (Hospitalization)
  Sender: FDA-Public Use
  Company Number: 94625

PATIENT
  Age: 15 Month
  Sex: Male

DRUGS (4)
  1. ACETAMINOPHEN SUPPOSITORIES/ 120 MG [Suspect]
     Indication: PYREXIA
     Dosage: 240 MG/ QID
  2. CARBAMAZEPINE [Concomitant]
  3. VALPROIC ACID [Concomitant]
  4. TOPIRAMATE [Concomitant]

REACTIONS (6)
  - ACTIVATED PARTIAL THROMBOPLASTIN TIME PROLONGED [None]
  - ALANINE AMINOTRANSFERASE INCREASED [None]
  - ANTICONVULSANT DRUG LEVEL INCREASED [None]
  - ASPARTATE AMINOTRANSFERASE INCREASED [None]
  - HEPATIC ENZYME INCREASED [None]
  - INTERNATIONAL NORMALISED RATIO INCREASED [None]
